FAERS Safety Report 6522419-5 (Version None)
Quarter: 2009Q4

REPORT INFORMATION
  Report Type: 
  Country: None (occurrence: None)
  Receive Date: 20091230
  Receipt Date: 20091217
  Transmission Date: 20100525
  Serious: Yes (Other)
  Sender: FDA-Public Use
  Company Number: TR-WYE-H12787909

PATIENT
  Sex: Female

DRUGS (2)
  1. EFFEXOR [Suspect]
     Dosage: 150 MG, FREQUENCY UNKNOWN
     Route: 048
  2. EFFEXOR [Suspect]
     Dosage: REDUCED THE DOSE TO 75 MG AND TO 37.5 MG RESPECTIVELY
     Route: 048

REACTIONS (6)
  - DIZZINESS [None]
  - DRUG DEPENDENCE [None]
  - DRUG WITHDRAWAL SYNDROME [None]
  - INSOMNIA [None]
  - NAUSEA [None]
  - PRURITUS [None]
